FAERS Safety Report 24721551 (Version 1)
Quarter: 2024Q4

REPORT INFORMATION
  Report Type: Spontaneous
  Country: US (occurrence: None)
  Receive Date: 20241210
  Receipt Date: 20241210
  Transmission Date: 20250115
  Serious: Yes (Other)
  Sender: Public
  Company Number: None

PATIENT
  Age: 59 Year
  Sex: Female
  Weight: 51.75 kg

DRUGS (1)
  1. KISQALI [Suspect]
     Active Substance: RIBOCICLIB
     Indication: Breast cancer female
     Dosage: 600 MG DAILY ORAL
     Route: 048

REACTIONS (2)
  - Abdominal discomfort [None]
  - Nausea [None]

NARRATIVE: CASE EVENT DATE: 20241210
